FAERS Safety Report 8364701-5 (Version None)
Quarter: 2012Q2

REPORT INFORMATION
  Report Type: 
  Country: None (occurrence: None)
  Receive Date: 20120516
  Receipt Date: 20120502
  Transmission Date: 20120825
  Serious: Yes (Death)
  Sender: FDA-Public Use
  Company Number: CA-ROCHE-1065355

PATIENT
  Sex: Female

DRUGS (8)
  1. MEGESTROL ACETATE [Concomitant]
  2. XELODA [Suspect]
     Indication: SMALL CELL CARCINOMA
     Route: 048
     Dates: start: 20120214, end: 20120401
  3. FRAGMIN [Concomitant]
  4. SENOKOT [Concomitant]
  5. RISEDRONATE SODIUM [Concomitant]
  6. POTASSIUM CHLORIDE [Concomitant]
  7. GABAPENTIN [Concomitant]
  8. DOCUSATE [Concomitant]

REACTIONS (1)
  - DEATH [None]
